FAERS Safety Report 6325918-4 (Version None)
Quarter: 2009Q3

REPORT INFORMATION
  Report Type: 
  Country: None (occurrence: None)
  Receive Date: 20090824
  Receipt Date: 20090824
  Transmission Date: 20100115
  Serious: No
  Sender: FDA-Public Use
  Company Number: US-B.I. PHARMACEUTICALS,INC./RIDGEFIELD-2009-BP-09797BP

PATIENT
  Age: 3 Year
  Sex: Male

DRUGS (2)
  1. CATAPRES-TTS-1 [Suspect]
     Indication: IMPULSE-CONTROL DISORDER
     Dosage: 0.2 MG
     Route: 061
     Dates: start: 20090601
  2. CATAPRES-TTS-1 [Suspect]
     Indication: ATTENTION DEFICIT/HYPERACTIVITY DISORDER

REACTIONS (1)
  - APPLICATION SITE VESICLES [None]
